FAERS Safety Report 16125023 (Version 1)
Quarter: 2019Q1

REPORT INFORMATION
  Report Type: Spontaneous
  Country: US (occurrence: US)
  Receive Date: 20190327
  Receipt Date: 20190327
  Transmission Date: 20190418
  Serious: Yes (Hospitalization)
  Sender: FDA-Public Use
  Company Number: US-CELGENEUS-USA-20190307822

PATIENT
  Sex: Male
  Weight: 83.99 kg

DRUGS (1)
  1. POMALYST [Suspect]
     Active Substance: POMALIDOMIDE
     Indication: PLASMA CELL MYELOMA
     Dosage: 4 MILLIGRAM
     Route: 048
     Dates: start: 20190124

REACTIONS (4)
  - Febrile neutropenia [Not Recovered/Not Resolved]
  - Respiratory failure [Not Recovered/Not Resolved]
  - Left ventricular failure [Not Recovered/Not Resolved]
  - Thrombophlebitis superficial [Not Recovered/Not Resolved]

NARRATIVE: CASE EVENT DATE: 2019
